FAERS Safety Report 7587582-6 (Version None)
Quarter: 2011Q3

REPORT INFORMATION
  Report Type: 
  Country: None (occurrence: None)
  Receive Date: 20110704
  Receipt Date: 20110621
  Transmission Date: 20111222
  Serious: Yes (Other)
  Sender: FDA-Public Use
  Company Number: PHHY2011TR55937

PATIENT
  Age: 67 Year
  Sex: Male

DRUGS (1)
  1. ZOLEDRONIC ACID [Suspect]
     Indication: OSTEOPOROSIS
     Route: 042
     Dates: start: 20110527

REACTIONS (5)
  - VERTIGO [None]
  - FLUSHING [None]
  - MUSCLE CONTRACTURE [None]
  - TREMOR [None]
  - MUSCLE SPASMS [None]
